FAERS Safety Report 5238840-1 (Version None)
Quarter: 2007Q1

REPORT INFORMATION
  Report Type: 
  Country: None (occurrence: None)
  Receive Date: 20070215
  Receipt Date: 20070126
  Transmission Date: 20070707
  Serious: Yes (Other)
  Sender: FDA-Public Use
  Company Number: FR-PFIZER INC-2007007308

PATIENT
  Age: 41 Year
  Sex: Female

DRUGS (2)
  1. ZITHROMAX [Suspect]
     Indication: PHARYNGOLARYNGEAL PAIN
     Route: 048
     Dates: start: 20070119, end: 20070121
  2. ZITHROMAX [Suspect]
     Indication: SINUSITIS

REACTIONS (4)
  - ACCOMMODATION DISORDER [None]
  - ASTHENOPIA [None]
  - DRUG INEFFECTIVE [None]
  - VISION BLURRED [None]
